FAERS Safety Report 8185457-5 (Version None)
Quarter: 2012Q1

REPORT INFORMATION
  Report Type: 
  Country: None (occurrence: None)
  Receive Date: 20120305
  Receipt Date: 20120301
  Transmission Date: 20120608
  Serious: Yes (Other)
  Sender: FDA-Public Use
  Company Number: GB-ABBOTT-11P-167-0874966-00

PATIENT
  Sex: Female

DRUGS (4)
  1. HUMIRA [Suspect]
     Indication: RHEUMATOID ARTHRITIS
     Route: 058
     Dates: start: 20031015
  2. METHOTREXATE [Concomitant]
     Indication: PRODUCT USED FOR UNKNOWN INDICATION
  3. CEPHALEXIN [Concomitant]
     Indication: PROPHYLAXIS
  4. CEPHALEXIN [Concomitant]
     Indication: INFECTION

REACTIONS (6)
  - CARDIOMEGALY [None]
  - VASCULAR DEMENTIA [None]
  - COGNITIVE DISORDER [None]
  - CEREBROVASCULAR DISORDER [None]
  - CEREBROVASCULAR ACCIDENT [None]
  - DYSSTASIA [None]
